FAERS Safety Report 7537501-3 (Version None)
Quarter: 2011Q2

REPORT INFORMATION
  Report Type: 
  Country: None (occurrence: None)
  Receive Date: 20110609
  Receipt Date: 20070426
  Transmission Date: 20111010
  Serious: Yes (Death)
  Sender: FDA-Public Use
  Company Number: PHNR2007AU01039

PATIENT
  Sex: Female

DRUGS (2)
  1. CLOZAPINE [Suspect]
     Dosage: 12.5 MG - 900 MG DAILY
     Route: 048
     Dates: start: 20060620, end: 20070417
  2. CLOZAPINE [Suspect]
     Dosage: 37.5 MG - 112.5 MG DAILY
     Route: 048
     Dates: start: 20031125, end: 20031205

REACTIONS (1)
  - DEATH [None]
